FAERS Safety Report 7667757-8 (Version None)
Quarter: 2011Q3

REPORT INFORMATION
  Report Type: 
  Country: None (occurrence: None)
  Receive Date: 20110806
  Receipt Date: 20110708
  Transmission Date: 20111222
  Serious: No
  Sender: FDA-Public Use
  Company Number: US-ABBOTT-11P-163-0837179-00

PATIENT
  Sex: Female
  Weight: 81.72 kg

DRUGS (6)
  1. LAMICTAL [Concomitant]
     Indication: HEAD INJURY
  2. TEGRETOL [Concomitant]
     Indication: HEAD INJURY
  3. NIASPAN [Suspect]
     Indication: BLOOD CHOLESTEROL INCREASED
     Dates: start: 20110601
  4. ESTROGENIC SUBSTANCE [Concomitant]
     Indication: HORMONE REPLACEMENT THERAPY
  5. UNKNOWN BLOOD PRESSURE MEDICATION [Concomitant]
     Indication: HYPERTENSION
  6. CRESTOR [Concomitant]
     Indication: BLOOD CHOLESTEROL INCREASED

REACTIONS (3)
  - PRURITUS [None]
  - FEELING HOT [None]
  - FLUSHING [None]
